FAERS Safety Report 14153455 (Version 3)
Quarter: 2018Q2

REPORT INFORMATION
  Report Type: Spontaneous
  Country: US (occurrence: US)
  Receive Date: 20171102
  Receipt Date: 20180430
  Transmission Date: 20180711
  Serious: No
  Sender: FDA-Public Use
  Company Number: US-SA-2017SA157211

PATIENT
  Age: 75 Year
  Sex: Male

DRUGS (2)
  1. PRALUENT [Suspect]
     Active Substance: ALIROCUMAB
     Indication: BLOOD CHOLESTEROL
     Route: 058
     Dates: start: 20170821
  2. ALIROCUMAB PREFILLED PEN [Suspect]
     Active Substance: ALIROCUMAB
     Indication: BLOOD CHOLESTEROL
     Dates: start: 20170821

REACTIONS (5)
  - Device use issue [Unknown]
  - Pharyngeal oedema [Recovering/Resolving]
  - Injection site erythema [Unknown]
  - Dysphagia [Recovering/Resolving]
  - Injection site injury [Unknown]

NARRATIVE: CASE EVENT DATE: 20170821
